FAERS Safety Report 24325070 (Version 1)
Quarter: 2024Q3

REPORT INFORMATION
  Report Type: Spontaneous
  Country: US (occurrence: US)
  Receive Date: 20240916
  Receipt Date: 20240916
  Transmission Date: 20241016
  Serious: No
  Sender: BRAINTREE
  Company Number: US-BRAINTREE LABORATORIES, INC.-2024BTE00475

PATIENT
  Age: 67 Year
  Sex: Female
  Weight: 59.874 kg

DRUGS (6)
  1. SUPREP BOWEL PREP [Suspect]
     Active Substance: MAGNESIUM SULFATE\POTASSIUM SULFATE\SODIUM SULFATE
     Indication: Colonoscopy
     Dosage: 1.5 X 6 OZ BOTTLE, 1X
     Route: 048
     Dates: start: 20240714, end: 202407
  2. XOLAIR [Concomitant]
     Active Substance: OMALIZUMAB
     Dosage: EVERY 28 DAYS
     Dates: start: 202403
  3. VITAMINS NOS [Concomitant]
     Active Substance: VITAMINS
  4. VITAMIN D NOS [Concomitant]
     Active Substance: CHOLECALCIFEROL\ERGOCALCIFEROL
  5. IRON [Concomitant]
     Active Substance: IRON
  6. ESTRADIOL [Concomitant]
     Active Substance: ESTRADIOL
     Dosage: UNK, 2X/WEEK
     Route: 067

REACTIONS (1)
  - Urticaria [Not Recovered/Not Resolved]

NARRATIVE: CASE EVENT DATE: 20240701
